FAERS Safety Report 8447901-5 (Version None)
Quarter: 2012Q2

REPORT INFORMATION
  Report Type: 
  Country: None (occurrence: None)
  Receive Date: 20120612
  Receipt Date: 20120531
  Transmission Date: 20120825
  Serious: Yes (Other)
  Sender: FDA-Public Use
  Company Number: DKLU1081493

PATIENT
  Age: 2 Year
  Sex: Female

DRUGS (3)
  1. KEPPRA [Concomitant]
  2. SABRIL [Suspect]
     Indication: INFANTILE SPASMS
     Dosage: 1000 MG, 2 IN 1 D), ORAL
     Route: 048
     Dates: start: 20110413
  3. ACTHAR (CORTICOTROPIN) [Concomitant]

REACTIONS (1)
  - BLINDNESS [None]
